FAERS Safety Report 8467826-9 (Version None)
Quarter: 2012Q2

REPORT INFORMATION
  Report Type: 
  Country: None (occurrence: None)
  Receive Date: 20120626
  Receipt Date: 20120619
  Transmission Date: 20120825
  Serious: Yes (Life-Threatening, Disabling, Other)
  Sender: FDA-Public Use
  Company Number: US-GLAXOSMITHKLINE-A0981696A

PATIENT
  Age: 26 Year
  Sex: Female

DRUGS (7)
  1. TOPROL-XL [Concomitant]
  2. ADVAIR DISKUS 100/50 [Suspect]
     Indication: ASTHMA
     Dosage: 1PUFF TWICE PER DAY
     Route: 055
     Dates: start: 20120528, end: 20120618
  3. VENTOLIN [Concomitant]
  4. PREDNISONE [Concomitant]
  5. WELLBUTRIN [Concomitant]
  6. SEASONALE [Concomitant]
  7. BENADRYL [Concomitant]

REACTIONS (14)
  - NERVOUSNESS [None]
  - PYREXIA [None]
  - RASH GENERALISED [None]
  - HEART RATE INCREASED [None]
  - VOMITING [None]
  - CHEST PAIN [None]
  - TREMOR [None]
  - URTICARIA [None]
  - CHILLS [None]
  - BLOOD PRESSURE INCREASED [None]
  - NAUSEA [None]
  - VENTRICULAR EXTRASYSTOLES [None]
  - DYSPHONIA [None]
  - HEADACHE [None]
